FAERS Safety Report 12115524 (Version 1)
Quarter: 2016Q1

REPORT INFORMATION
  Report Type: Spontaneous
  Country: US (occurrence: US)
  Receive Date: 20160225
  Receipt Date: 20160225
  Transmission Date: 20160526
  Serious: No
  Sender: FDA-Public Use
  Company Number: US-MYLANLABS-2015M1007909

PATIENT
  Age: 66 Year
  Sex: Male
  Weight: 92.97 kg

DRUGS (4)
  1. ALPRAZOLAM TABLETS, USP [Suspect]
     Active Substance: ALPRAZOLAM
     Dosage: 0.5 MG, TID
     Route: 048
     Dates: start: 20150304
  2. TOPROL XL [Concomitant]
     Active Substance: METOPROLOL SUCCINATE
     Dosage: 100 MG, AM
     Route: 048
  3. ALPRAZOLAM TABLETS, USP [Suspect]
     Active Substance: ALPRAZOLAM
     Indication: PANIC ATTACK
     Dosage: 1 MG, QD
     Route: 048
     Dates: start: 20150304
  4. ALPRAZOLAM TABLETS, USP [Suspect]
     Active Substance: ALPRAZOLAM
     Dosage: 1 MG, HS
     Route: 048
     Dates: start: 20150304

REACTIONS (1)
  - Drug ineffective [Not Recovered/Not Resolved]

NARRATIVE: CASE EVENT DATE: 20150304
